FAERS Safety Report 25256168 (Version 2)
Quarter: 2025Q2

REPORT INFORMATION
  Report Type: Spontaneous
  Country: CA (occurrence: CA)
  Receive Date: 20250430
  Receipt Date: 20250503
  Transmission Date: 20250717
  Serious: Yes (Hospitalization, Other)
  Sender: Karo Pharma
  Company Number: CA-Karo Pharma-2175913

PATIENT
  Age: 65 Year

DRUGS (28)
  1. LAMISIL [Suspect]
     Active Substance: TERBINAFINE HYDROCHLORIDE
     Indication: Product used for unknown indication
  2. COSENTYX [Suspect]
     Active Substance: SECUKINUMAB
  3. SYNTHROID [Concomitant]
     Active Substance: LEVOTHYROXINE SODIUM
  4. CLOBETASOL PROPIONATE [Concomitant]
     Active Substance: CLOBETASOL PROPIONATE
  5. ACETAMINOPHEN [Concomitant]
     Active Substance: ACETAMINOPHEN
  6. Novolin ge nph [Insulin human isophane] [Concomitant]
  7. BETAMETHASONE DIPROPIONATE [Concomitant]
     Active Substance: BETAMETHASONE DIPROPIONATE
  8. FORMOTEROL [Concomitant]
     Active Substance: FORMOTEROL
  9. HYDROXYZINE [Concomitant]
     Active Substance: HYDROXYZINE HYDROCHLORIDE
  10. DILTIAZEM [Concomitant]
     Active Substance: DILTIAZEM
  11. BETAMETHASONE VALERATE [Concomitant]
     Active Substance: BETAMETHASONE VALERATE
  12. NOVORAPID [Concomitant]
     Active Substance: INSULIN ASPART
  13. PULMICORT TURBUHALER [Concomitant]
     Active Substance: BUDESONIDE
  14. SALICYLIC ACID [Concomitant]
     Active Substance: SALICYLIC ACID
  15. DOMPERIDONE [Concomitant]
     Active Substance: DOMPERIDONE
  16. ACITRETIN [Concomitant]
     Active Substance: ACITRETIN
  17. CLONIDINE [Concomitant]
     Active Substance: CLONIDINE
  18. ONEALFA [Concomitant]
     Active Substance: ALFACALCIDOL
  19. PREGABALIN [Concomitant]
     Active Substance: PREGABALIN
  20. CYCLOSPORINE [Suspect]
     Active Substance: CYCLOSPORINE
  21. METHOTREXATE [Suspect]
     Active Substance: METHOTREXATE
  22. IODINE [Suspect]
     Active Substance: IODINE
  23. .ALPHA.-TOCOPHEROL ACETATE, DL- [Suspect]
     Active Substance: .ALPHA.-TOCOPHEROL ACETATE, DL-
  24. QUETIAPINE [Suspect]
     Active Substance: QUETIAPINE
  25. ATORVASTATIN CALCIUM [Suspect]
     Active Substance: ATORVASTATIN CALCIUM
  26. LAMISIL [Suspect]
     Active Substance: TERBINAFINE HYDROCHLORIDE
  27. ERGOCALCIFEROL [Suspect]
     Active Substance: ERGOCALCIFEROL
  28. FUROSEMIDE [Suspect]
     Active Substance: FUROSEMIDE

REACTIONS (21)
  - Wrong technique in device usage process [Not Recovered/Not Resolved]
  - Back pain [Not Recovered/Not Resolved]
  - Dyspnoea [Not Recovered/Not Resolved]
  - Skin discolouration [Not Recovered/Not Resolved]
  - Dysuria [Not Recovered/Not Resolved]
  - Heart rate decreased [Not Recovered/Not Resolved]
  - Gait inability [Not Recovered/Not Resolved]
  - Weight decreased [Not Recovered/Not Resolved]
  - Infection [Not Recovered/Not Resolved]
  - Hypoglycaemia [Not Recovered/Not Resolved]
  - Fall [Not Recovered/Not Resolved]
  - Sensory disturbance [Not Recovered/Not Resolved]
  - Incorrect dosage administered [Not Recovered/Not Resolved]
  - Anxiety [Not Recovered/Not Resolved]
  - Skin atrophy [Not Recovered/Not Resolved]
  - Syncope [Not Recovered/Not Resolved]
  - Headache [Not Recovered/Not Resolved]
  - Pain in extremity [Not Recovered/Not Resolved]
  - Blood pressure decreased [Not Recovered/Not Resolved]
  - Contusion [Not Recovered/Not Resolved]
  - Poor quality sleep [Not Recovered/Not Resolved]
